FAERS Safety Report 18813733 (Version 1)
Quarter: 2021Q1

REPORT INFORMATION
  Report Type: Spontaneous
  Country: CZ (occurrence: CZ)
  Receive Date: 20210201
  Receipt Date: 20210201
  Transmission Date: 20210419
  Serious: Yes (Other)
  Sender: FDA-Public Use
  Company Number: CZ-JNJFOC-20210139294

PATIENT
  Age: 63 Year
  Sex: Male

DRUGS (10)
  1. TRULICITY [Concomitant]
     Active Substance: DULAGLUTIDE
     Dosage: ONCE A WEEK
     Dates: start: 20180301
  2. ROSUCARD [Concomitant]
     Active Substance: ROSUVASTATIN CALCIUM
     Dosage: 1?0?0
     Dates: start: 20170601
  3. AMICLOTON [Concomitant]
     Dosage: 2.5MG / 25MG, 1/2?0?0
     Dates: start: 19950101
  4. METFORMIN [Concomitant]
     Active Substance: METFORMIN HYDROCHLORIDE
     Dosage: 1?1?1
     Dates: start: 20000101
  5. TREMFYA [Suspect]
     Active Substance: GUSELKUMAB
  6. COSYREL [Concomitant]
     Active Substance: BISOPROLOL FUMARATE\PERINDOPRIL ARGININE
     Dosage: 1?0?0
  7. MILURIT [Concomitant]
     Active Substance: ALLOPURINOL
     Dosage: 1?0?0
     Dates: start: 20000101
  8. TREMFYA [Suspect]
     Active Substance: GUSELKUMAB
     Indication: PSORIASIS
     Dosage: 100 MG AT WEEK 0 AND 4, THEN  EVERY 8 WEEK
     Route: 058
     Dates: start: 20190815
  9. ANOPYRIN [Concomitant]
     Active Substance: ASPIRIN
     Dosage: 1?0?0
     Dates: start: 19950101
  10. TREMFYA [Suspect]
     Active Substance: GUSELKUMAB

REACTIONS (1)
  - Prostate cancer [Unknown]

NARRATIVE: CASE EVENT DATE: 20201130
